FAERS Safety Report 5208090-3 (Version None)
Quarter: 2006Q4

REPORT INFORMATION
  Report Type: 
  Country: None (occurrence: None)
  Receive Date: 20061027
  Receipt Date: 20060914
  Transmission Date: 20070319
  Serious: No
  Sender: FDA-Public Use
  Company Number: 200617801US

PATIENT
  Age: 23 Year
  Sex: Female

DRUGS (7)
  1. KETEK [Suspect]
     Indication: SINUSITIS
     Dosage: 800 MG QD PO
     Route: 048
     Dates: start: 20060913, end: 20060914
  2. ADVAIR DISKUS 100/50 [Suspect]
     Indication: ASTHMA
     Dosage: PO A FEW YEARS
     Route: 048
  3. MONTELUKAST SODIUM [Concomitant]
  4. NASACORT [Concomitant]
  5. ETHINYLESTRADIOL, NORGESTIMATE (ORTHO TRI-CYCLEN LO) [Concomitant]
  6. FERROUS SULFATE (SLOW-FE) [Concomitant]
  7. ALBUTEROL [Concomitant]

REACTIONS (4)
  - ANXIETY [None]
  - TACHYCARDIA [None]
  - TENSION [None]
  - TREMOR [None]
